FAERS Safety Report 10630466 (Version 2)
Quarter: 2014Q4

REPORT INFORMATION
  Report Type: Spontaneous
  Country: US (occurrence: US)
  Receive Date: 20141205
  Receipt Date: 20141205
  Transmission Date: 20150529
  Serious: No
  Sender: FDA-Public Use
  Company Number: US-BRISTOL-MYERS SQUIBB COMPANY-19333319

PATIENT
  Age: 46 Year
  Sex: Female
  Weight: 83.92 kg

DRUGS (9)
  1. SYMLIN [Suspect]
     Active Substance: PRAMLINTIDE ACETATE
     Dosage: SYMLIN INJECTION
     Route: 058
     Dates: start: 200507, end: 20060601
  2. NOVOLOG [Concomitant]
     Active Substance: INSULIN ASPART
     Indication: TYPE 2 DIABETES MELLITUS
     Dosage: DOSE UNIT:92?NOVOLOG 70/30
     Route: 058
     Dates: start: 1999
  3. NOVOLOG [Concomitant]
     Active Substance: INSULIN ASPART
     Indication: TYPE 2 DIABETES MELLITUS
     Dosage: DOSE UNIT:45
     Route: 058
     Dates: start: 1999
  4. GLUCOPHAGE [Concomitant]
     Active Substance: METFORMIN HYDROCHLORIDE
     Indication: TYPE 2 DIABETES MELLITUS
     Dosage: GLUCOPHAGE ^BRISTOL-MYERS SQUIBB^
     Route: 048
     Dates: start: 1996
  5. HUMULIN R [Concomitant]
     Active Substance: INSULIN HUMAN
     Dates: start: 1996
  6. SYMLIN [Suspect]
     Active Substance: PRAMLINTIDE ACETATE
     Route: 058
     Dates: start: 200506
  7. EXENATIDE PEN DISPOSABLE [Suspect]
     Active Substance: EXENATIDE
     Indication: TYPE 2 DIABETES MELLITUS
     Dosage: BYETTA INJECTION
     Route: 058
     Dates: start: 20060602
  8. NOVOLOG [Concomitant]
     Active Substance: INSULIN ASPART
     Indication: TYPE 2 DIABETES MELLITUS
     Dosage: DOSE UNIT:20
     Dates: start: 2006, end: 20060601
  9. NOVOLOG [Concomitant]
     Active Substance: INSULIN ASPART
     Indication: TYPE 2 DIABETES MELLITUS
     Dosage: DOSE UNIT:8
     Dates: start: 2006, end: 20060601

REACTIONS (2)
  - Blood glucose decreased [Recovered/Resolved]
  - Abdominal distension [Not Recovered/Not Resolved]

NARRATIVE: CASE EVENT DATE: 200506
